FAERS Safety Report 5593642-1 (Version None)
Quarter: 2007Q4

REPORT INFORMATION
  Report Type: 
  Country: None (occurrence: None)
  Receive Date: 20071218
  Receipt Date: 20061109
  Transmission Date: 20080405
  Serious: Yes (Hospitalization)
  Sender: FDA-Public Use
  Company Number: 2006143018

PATIENT
  Age: 47 Year
  Sex: Male
  Weight: 94.8 kg

DRUGS (3)
  1. BEXTRA [Suspect]
     Indication: ARTHRITIS
     Dosage: 10 OR 20 MG (1 IN 1 D)
  2. BEXTRA [Suspect]
     Indication: BACK PAIN
     Dosage: 10 OR 20 MG (1 IN 1 D)
  3. BEXTRA [Suspect]
     Indication: MUSCULOSKELETAL PAIN
     Dosage: 10 OR 20 MG (1 IN 1 D)

REACTIONS (1)
  - MYOCARDIAL INFARCTION [None]
